FAERS Safety Report 10917821 (Version 1)
Quarter: 2015Q1

REPORT INFORMATION
  Report Type: Spontaneous
  Country: PL (occurrence: PL)
  Receive Date: 20150316
  Receipt Date: 20150316
  Transmission Date: 20150721
  Serious: Yes (Hospitalization, Other)
  Sender: FDA-Public Use
  Company Number: PL-GLAXOSMITHKLINE-PL2015GSK034145

PATIENT
  Age: 68 Year
  Sex: Male

DRUGS (3)
  1. BISOPROLOL [Suspect]
     Active Substance: BISOPROLOL
     Indication: ARRHYTHMIA PROPHYLAXIS
     Dosage: 5 MG, QD
  2. DABIGATRAN [Concomitant]
     Active Substance: DABIGATRAN
     Indication: PROPHYLAXIS
  3. PROPAFENONE. [Suspect]
     Active Substance: PROPAFENONE
     Indication: PROPHYLAXIS
     Dosage: 150 MG, TID

REACTIONS (2)
  - Ventricular tachycardia [Unknown]
  - Drug ineffective [Recovered/Resolved]
